FAERS Safety Report 17100793 (Version 1)
Quarter: 2019Q4

REPORT INFORMATION
  Report Type: Spontaneous
  Country: US (occurrence: US)
  Receive Date: 20191202
  Receipt Date: 20191202
  Transmission Date: 20200122
  Serious: Yes (Other)
  Sender: FDA-Public Use
  Company Number: US-SA-2018SA122151

PATIENT
  Age: 50 Year
  Sex: Female
  Weight: 74 kg

DRUGS (19)
  1. TAXOTERE [Suspect]
     Active Substance: DOCETAXEL
     Indication: BREAST CANCER FEMALE
     Dosage: 130 MG, Q3W
     Route: 042
     Dates: start: 20101102, end: 20101102
  2. HERCEPTIN [Concomitant]
     Active Substance: TRASTUZUMAB
     Dosage: 6 MG/KG
  3. BENADRYL [Concomitant]
     Active Substance: DIPHENHYDRAMINE HYDROCHLORIDE
     Dosage: 25 MG
     Dates: start: 20101102, end: 20101102
  4. LORAZEPAM. [Concomitant]
     Active Substance: LORAZEPAM
     Dosage: UNK
  5. HYDROCHLOROTHIAZIDE. [Concomitant]
     Active Substance: HYDROCHLOROTHIAZIDE
  6. TRAMADOL. [Concomitant]
     Active Substance: TRAMADOL
  7. TAXOTERE [Suspect]
     Active Substance: DOCETAXEL
     Dosage: 130 MG
     Route: 051
     Dates: start: 20110215, end: 20110215
  8. CYANOCOBALAMIN. [Concomitant]
     Active Substance: CYANOCOBALAMIN
     Dosage: UNK
  9. ZOFRAN [Concomitant]
     Active Substance: ONDANSETRON HYDROCHLORIDE
     Dosage: 8 MG
     Dates: start: 20101102, end: 20101103
  10. HERCEPTIN [Concomitant]
     Active Substance: TRASTUZUMAB
     Dosage: 2 MG/KG
     Dates: start: 20101109, end: 20101109
  11. WARFARIN [Concomitant]
     Active Substance: WARFARIN
     Dosage: UNK
  12. ABILIFY [Concomitant]
     Active Substance: ARIPIPRAZOLE
  13. DECADERM [Concomitant]
     Active Substance: DEXAMETHASONE
     Dosage: 20 MG
     Route: 042
     Dates: start: 20101102, end: 20101102
  14. PEPCID [Concomitant]
     Active Substance: FAMOTIDINE
     Dosage: 20 MG
     Dates: start: 20101102, end: 20101102
  15. HERCEPTIN [Concomitant]
     Active Substance: TRASTUZUMAB
     Indication: BREAST CANCER FEMALE
     Dosage: 4 MG
     Dates: start: 20101102, end: 20101102
  16. CARBOPLATIN. [Concomitant]
     Active Substance: CARBOPLATIN
     Indication: BREAST CANCER FEMALE
     Dosage: 626 MG
     Route: 042
     Dates: start: 20101102, end: 20101102
  17. HERCEPTIN [Concomitant]
     Active Substance: TRASTUZUMAB
     Dosage: 296 UNK
  18. EXEMESTANE. [Concomitant]
     Active Substance: EXEMESTANE
  19. CYMBALTA [Concomitant]
     Active Substance: DULOXETINE HYDROCHLORIDE

REACTIONS (6)
  - Psychological trauma [Unknown]
  - Anxiety [Unknown]
  - Impaired quality of life [Unknown]
  - Pain [Unknown]
  - Alopecia [Not Recovered/Not Resolved]
  - Emotional distress [Unknown]

NARRATIVE: CASE EVENT DATE: 201103
